FAERS Safety Report 8617929-0 (Version None)
Quarter: 2012Q3

REPORT INFORMATION
  Report Type: 
  Country: None (occurrence: None)
  Receive Date: 20120824
  Receipt Date: 20120306
  Transmission Date: 20120928
  Serious: No
  Sender: FDA-Public Use
  Company Number: US-ASTRAZENECA-2012SE15699

PATIENT
  Age: 55 Year
  Sex: Male

DRUGS (9)
  1. NEXIUM [Suspect]
     Indication: GASTROOESOPHAGEAL REFLUX DISEASE
     Route: 048
     Dates: start: 20100517
  2. ATENOLOL [Concomitant]
     Indication: ESSENTIAL HYPERTENSION
     Route: 048
  3. LAMISIL [Concomitant]
     Route: 048
     Dates: start: 20120214
  4. SYMBICORT [Suspect]
     Indication: CHRONIC OBSTRUCTIVE PULMONARY DISEASE
     Dosage: 160/4.5MCG 1TWICE DAILY
     Route: 055
     Dates: start: 20100422
  5. PRAVASTATIN SODIUM [Concomitant]
     Indication: TYPE V HYPERLIPIDAEMIA
     Route: 048
     Dates: start: 20120118
  6. ASPIRIN [Concomitant]
     Indication: SECONDARY HYPERTENSION
     Dates: start: 20091019
  7. CLONIDINE HCL [Concomitant]
     Route: 048
     Dates: start: 20120118
  8. AMLODIPINE BESYLATE [Concomitant]
     Route: 048
     Dates: start: 20120118
  9. UREA [Concomitant]
     Dosage: APPLY TO FEET TWICE A DAY
     Dates: start: 20120214

REACTIONS (10)
  - HYPERKERATOSIS [None]
  - BRONCHITIS [None]
  - SECONDARY HYPERTENSION [None]
  - WHEEZING [None]
  - HYPERHIDROSIS [None]
  - DYSPNOEA [None]
  - ONYCHOMYCOSIS [None]
  - CHRONIC OBSTRUCTIVE PULMONARY DISEASE [None]
  - DRUG INEFFECTIVE [None]
  - PAIN IN EXTREMITY [None]
